FAERS Safety Report 4860858-9 (Version None)
Quarter: 2005Q4

REPORT INFORMATION
  Report Type: 
  Country: None (occurrence: None)
  Receive Date: 20051220
  Receipt Date: 20051209
  Transmission Date: 20060501
  Serious: Yes (Other)
  Sender: FDA-Public Use
  Company Number: CA-BRISTOL-MYERS SQUIBB COMPANY-13218607

PATIENT
  Age: 76 Year
  Sex: Male

DRUGS (13)
  1. TEQUIN [Suspect]
     Route: 042
  2. AGGRENOX [Concomitant]
     Route: 048
  3. ALTACE [Concomitant]
     Route: 048
  4. DIABETA [Concomitant]
  5. GLUCOPHAGE [Concomitant]
  6. IMDUR [Concomitant]
     Route: 048
  7. LASIX [Concomitant]
     Route: 048
  8. PRANDASE [Concomitant]
  9. SLOW-K [Concomitant]
     Route: 048
  10. SOTALOL HCL [Concomitant]
     Route: 048
  11. VITAMIN B-12 [Concomitant]
  12. ZOCOR [Concomitant]
     Route: 048
  13. ZOLOFT [Concomitant]
     Route: 048

REACTIONS (1)
  - HYPOGLYCAEMIA [None]
